FAERS Safety Report 19429694 (Version 2)
Quarter: 2021Q3

REPORT INFORMATION
  Report Type: Report from Study
  Country: CN (occurrence: CN)
  Receive Date: 20210617
  Receipt Date: 20210712
  Transmission Date: 20211014
  Serious: Yes (Hospitalization)
  Sender: FDA-Public Use
  Company Number: NVSC2021CN131756

PATIENT
  Age: 30 Year
  Sex: Female
  Weight: 38.5 kg

DRUGS (4)
  1. CAPECITABINE. [Suspect]
     Active Substance: CAPECITABINE
     Dosage: 2500 MG (1000 MG (IN THE MORNING), 1500 MG (IN THE EVENING))
     Route: 048
     Dates: start: 20210604
  2. CAPECITABINE. [Suspect]
     Active Substance: CAPECITABINE
     Indication: BREAST CANCER
     Dosage: 2500 MG, 1000 MG (IN THE MORNING), 1500 MG (IN THE EVENING)
     Route: 048
     Dates: start: 20210512, end: 20210520
  3. TYKERB [Suspect]
     Active Substance: LAPATINIB DITOSYLATE
     Indication: BREAST CANCER
     Dosage: 1250 MG, QD
     Route: 048
     Dates: start: 20210512, end: 20210520
  4. TYKERB [Suspect]
     Active Substance: LAPATINIB DITOSYLATE
     Dosage: 1200 MG, QD
     Route: 065
     Dates: start: 20210607

REACTIONS (8)
  - Rash [Recovered/Resolved]
  - White blood cell count decreased [Unknown]
  - Erythema multiforme [Recovering/Resolving]
  - Pruritus [Recovering/Resolving]
  - Red blood cell count decreased [Unknown]
  - Neutrophil count decreased [Unknown]
  - Erythema [Recovering/Resolving]
  - Haemoglobin decreased [Unknown]

NARRATIVE: CASE EVENT DATE: 20210521
